FAERS Safety Report 11617846 (Version 1)
Quarter: 2015Q4

REPORT INFORMATION
  Report Type: Spontaneous
  Country: BR (occurrence: BR)
  Receive Date: 20151009
  Receipt Date: 20151009
  Transmission Date: 20160304
  Serious: Yes (Other)
  Sender: FDA-Public Use
  Company Number: BR-TEVA-600185USA

PATIENT
  Sex: Female

DRUGS (1)
  1. POSTINOR UNO [Suspect]
     Active Substance: LEVONORGESTREL
     Indication: POST COITAL CONTRACEPTION
     Route: 048

REACTIONS (2)
  - Headache [Recovered/Resolved]
  - Generalised oedema [Recovered/Resolved]
